FAERS Safety Report 18894581 (Version 2)
Quarter: 2021Q1

REPORT INFORMATION
  Report Type: Spontaneous
  Country: BR (occurrence: BR)
  Receive Date: 20210215
  Receipt Date: 20210315
  Transmission Date: 20210420
  Serious: Yes (Other)
  Sender: FDA-Public Use
  Company Number: BR-GLAXOSMITHKLINE-BR2021AMR005724

PATIENT
  Age: 45 Year
  Sex: Female
  Weight: 97 kg

DRUGS (1)
  1. NUCALA [Suspect]
     Active Substance: MEPOLIZUMAB
     Indication: ASTHMA
     Dosage: 100 MG, Z (MONTHLY)
     Dates: start: 20201127

REACTIONS (14)
  - Inappropriate schedule of product administration [Not Recovered/Not Resolved]
  - Swelling face [Unknown]
  - Eye swelling [Unknown]
  - Urticaria [Unknown]
  - Sleep disorder due to a general medical condition [Unknown]
  - Blister [Unknown]
  - Asthmatic crisis [Recovered/Resolved]
  - Fatigue [Not Recovered/Not Resolved]
  - Weight increased [Not Recovered/Not Resolved]
  - Hypersensitivity [Unknown]
  - Pruritus [Unknown]
  - Dyspnoea exertional [Unknown]
  - Dyspnoea [Unknown]
  - Erythema [Unknown]

NARRATIVE: CASE EVENT DATE: 20210208
